FAERS Safety Report 21139710 (Version 1)
Quarter: 2022Q3

REPORT INFORMATION
  Report Type: Report from Study
  Country: US (occurrence: US)
  Receive Date: 20220727
  Receipt Date: 20220727
  Transmission Date: 20221027
  Serious: Yes (Hospitalization, Other)
  Sender: FDA-Public Use
  Company Number: US-ABBVIE-22K-163-4476165-00

PATIENT
  Sex: Male
  Weight: 96.702 kg

DRUGS (12)
  1. IMBRUVICA [Suspect]
     Active Substance: IBRUTINIB
     Indication: Chronic lymphocytic leukaemia
     Route: 048
     Dates: start: 20210804
  2. METOPROLOL [Concomitant]
     Active Substance: METOPROLOL
     Indication: Cardiac disorder
  3. FUROSEMIDE [Concomitant]
     Active Substance: FUROSEMIDE
     Indication: Cardiac failure congestive
  4. FAMOTIDINE [Concomitant]
     Active Substance: FAMOTIDINE
     Indication: Gastrooesophageal reflux disease
  5. JARDIANCE [Concomitant]
     Active Substance: EMPAGLIFLOZIN
     Indication: Diabetes mellitus
     Dates: start: 202205
  6. ELIQUIS [Concomitant]
     Active Substance: APIXABAN
     Indication: Anticoagulant therapy
  7. POTASSIUM [Concomitant]
     Active Substance: POTASSIUM
     Indication: Hypokalaemia
  8. KEPPRA [Concomitant]
     Active Substance: LEVETIRACETAM
     Indication: Seizure
  9. TRAMADOL [Concomitant]
     Active Substance: TRAMADOL
     Indication: Back pain
  10. SENNA [Concomitant]
     Active Substance: SENNA LEAF\SENNOSIDES\SENNOSIDES A AND B
     Indication: Constipation
  11. MODERNA COVID-19 VACCINE [Concomitant]
     Active Substance: ELASOMERAN
     Indication: COVID-19 immunisation
     Dosage: MODERNA
     Route: 030
     Dates: start: 202104, end: 202104
  12. MODERNA COVID-19 VACCINE [Concomitant]
     Active Substance: ELASOMERAN
     Dosage: MODERNA
     Route: 030
     Dates: start: 202111, end: 202111

REACTIONS (12)
  - Hypoaesthesia [Recovered/Resolved]
  - Carotid artery occlusion [Recovered/Resolved]
  - Cerebral haemorrhage [Recovered/Resolved]
  - Hypoaesthesia [Recovered/Resolved]
  - Head injury [Recovered/Resolved]
  - Skull fracture [Recovered/Resolved]
  - Joint range of motion decreased [Recovered/Resolved]
  - Confusional state [Recovered/Resolved]
  - White blood cell count increased [Recovered/Resolved]
  - Fall [Unknown]
  - Syncope [Recovered/Resolved]
  - Dizziness [Recovered/Resolved]

NARRATIVE: CASE EVENT DATE: 20210101
